FAERS Safety Report 11754801 (Version 2)
Quarter: 2015Q4

REPORT INFORMATION
  Report Type: Spontaneous
  Country: US (occurrence: US)
  Receive Date: 20151119
  Receipt Date: 20151120
  Transmission Date: 20160304
  Serious: No
  Sender: FDA-Public Use
  Company Number: US-ETHYPHARM USA CORP-EY-BP-US-2015-114

PATIENT

DRUGS (2)
  1. BENZODIAZEPINES [Suspect]
     Active Substance: BENZODIAZEPINE
  2. BUPRENORPHINE. [Suspect]
     Active Substance: BUPRENORPHINE
     Route: 065

REACTIONS (4)
  - Energy increased [None]
  - Euphoric mood [None]
  - Apathy [None]
  - Feeling abnormal [None]
